FAERS Safety Report 4360644-2 (Version None)
Quarter: 2004Q2

REPORT INFORMATION
  Report Type: 
  Country: None (occurrence: None)
  Receive Date: 20040519
  Receipt Date: 20040519
  Transmission Date: 20050107
  Serious: Yes (Life-Threatening, Hospitalization)
  Sender: FDA-Public Use
  Company Number: None

PATIENT
  Age: 49 Year
  Sex: Female
  Weight: 55 kg

DRUGS (16)
  1. MOXIFLOXACIN HCL [Suspect]
     Indication: BRONCHITIS
     Dosage: ONCE? ORAL
     Route: 048
     Dates: start: 20040206, end: 20040207
  2. MOXIFLOXACIN HCL [Suspect]
     Indication: INFLUENZA LIKE ILLNESS
     Dosage: ONCE? ORAL
     Route: 048
     Dates: start: 20040206, end: 20040207
  3. MOXIFLOXACIN HCL [Suspect]
     Indication: PRODUCTIVE COUGH
     Dosage: ONCE? ORAL
     Route: 048
     Dates: start: 20040206, end: 20040207
  4. RHINOCORT [Concomitant]
  5. CALCIUM [Concomitant]
  6. COREG [Concomitant]
  7. ZYRTEC [Concomitant]
  8. DIGOXIN [Concomitant]
  9. VASOTEC [Concomitant]
  10. ESTRADIOL [Concomitant]
  11. FUROSEMIDE [Concomitant]
  12. MULTI-VITAMIN [Concomitant]
  13. ASPIRIN [Concomitant]
  14. WARFARIN SODIUM [Concomitant]
  15. SYNTHROID [Concomitant]
  16. ALBUTEROL [Concomitant]

REACTIONS (7)
  - AMNESIA [None]
  - BUNDLE BRANCH BLOCK [None]
  - CARDIAC ARREST [None]
  - COMA [None]
  - ELECTROCARDIOGRAM QT CORRECTED INTERVAL PROLONGED [None]
  - HYPOXIC ENCEPHALOPATHY [None]
  - VENTRICULAR FIBRILLATION [None]
